FAERS Safety Report 14196102 (Version 1)
Quarter: 2017Q4

REPORT INFORMATION
  Report Type: Spontaneous
  Country: US (occurrence: US)
  Receive Date: 20171116
  Receipt Date: 20171116
  Transmission Date: 20180321
  Serious: No
  Sender: FDA-Public Use
  Company Number: US-BAUSCH-BL-2017-024886

PATIENT
  Age: 12 Year
  Sex: Male
  Weight: 83.54 kg

DRUGS (1)
  1. XENAZINE [Suspect]
     Active Substance: TETRABENAZINE
     Indication: TOURETTE^S DISORDER
     Dosage: ONE TABLET DAILY FROM MONDAY THROUGH FRIDAY
     Route: 065
     Dates: start: 200901, end: 201705

REACTIONS (2)
  - Anxiety [Not Recovered/Not Resolved]
  - Off label use [Recovered/Resolved]

NARRATIVE: CASE EVENT DATE: 200901
